FAERS Safety Report 4902583-1 (Version None)
Quarter: 2006Q1

REPORT INFORMATION
  Report Type: 
  Country: None (occurrence: None)
  Receive Date: 20060113
  Receipt Date: 20050419
  Transmission Date: 20060701
  Serious: Yes (Other)
  Sender: FDA-Public Use
  Company Number: 2005049693

PATIENT
  Age: 66 Year
  Sex: Male

DRUGS (9)
  1. DIFLUCAN [Suspect]
     Indication: SYSTEMIC CANDIDA
     Dosage: 200 MG (200 MG, DAILY), ORAL
     Route: 048
  2. FENTANYL [Suspect]
     Indication: PAIN
     Dosage: 100 MCG, TOPICAL
     Route: 061
  3. VITAMINS (VITAMINS) [Concomitant]
  4. ACETAMINOPHEN [Concomitant]
  5. ANALGESICS [Concomitant]
  6. VICODIN [Concomitant]
  7. TRAMADOL HCL [Concomitant]
  8. PEMIROLAST POTASSIUM (PEMIROLAST POTASSIUM) [Concomitant]
  9. FLUTICASONE PROPIONATE [Concomitant]

REACTIONS (11)
  - AMNESIA [None]
  - ANOREXIA [None]
  - ANTIBODY TEST ABNORMAL [None]
  - BIOPSY BONE [None]
  - BLOOD URIC ACID INCREASED [None]
  - BODY HEIGHT DECREASED [None]
  - CANDIDIASIS [None]
  - FEELING ABNORMAL [None]
  - PAIN [None]
  - SPINAL DISORDER [None]
  - WEIGHT DECREASED [None]
